FAERS Safety Report 6719185-7 (Version None)
Quarter: 2010Q2

REPORT INFORMATION
  Report Type: 
  Country: None (occurrence: None)
  Receive Date: 20100510
  Receipt Date: 20100510
  Transmission Date: 20101027
  Serious: Yes (Hospitalization)
  Sender: FDA-Public Use
  Company Number: None

PATIENT
  Age: 50 Year
  Sex: Male
  Weight: 69.8 kg

DRUGS (1)
  1. ADALIMUMAB [Suspect]
     Indication: PSORIASIS
     Dosage: 40 MG OTHER SQ
     Route: 058
     Dates: start: 20090324, end: 20100506

REACTIONS (1)
  - IDIOPATHIC THROMBOCYTOPENIC PURPURA [None]
